FAERS Safety Report 8221536-1 (Version None)
Quarter: 2012Q1

REPORT INFORMATION
  Report Type: 
  Country: None (occurrence: None)
  Receive Date: 20120316
  Receipt Date: 20120306
  Transmission Date: 20120608
  Serious: Yes (Other)
  Sender: FDA-Public Use
  Company Number: TRP_07675_2011

PATIENT
  Age: 1 Day
  Sex: Male

DRUGS (4)
  1. RIBAVIRIN [Suspect]
     Indication: PRODUCT USED FOR UNKNOWN INDICATION
     Dosage: DF
     Dates: start: 20090612, end: 20100514
  2. PEGASYS [Suspect]
     Indication: PRODUCT USED FOR UNKNOWN INDICATION
     Dosage: 80 MICROGRAM, 1 IN 1 WEEK, INTRAMUSCULAR
     Route: 030
     Dates: start: 20090612, end: 20100507
  3. ZYRTEC [Concomitant]
  4. PRILOSEC [Concomitant]

REACTIONS (6)
  - HAEMOGLOBIN DECREASED [None]
  - JAUNDICE [None]
  - VARICOSE VEIN [None]
  - UMBILICAL CORD ABNORMALITY [None]
  - MATERNAL DRUGS AFFECTING FOETUS [None]
  - CAESAREAN SECTION [None]
